FAERS Safety Report 7292809-4 (Version None)
Quarter: 2011Q1

REPORT INFORMATION
  Report Type: 
  Country: None (occurrence: None)
  Receive Date: 20110215
  Receipt Date: 20110206
  Transmission Date: 20110831
  Serious: Yes (Death, Life-Threatening)
  Sender: FDA-Public Use
  Company Number: MA-CELGENEUS-110-50794-11011512

PATIENT
  Sex: Male
  Weight: 68 kg

DRUGS (6)
  1. EXJADE [Concomitant]
     Route: 065
     Dates: start: 20080720
  2. STILNOX [Concomitant]
     Route: 065
  3. ZYLORIC [Concomitant]
     Indication: HYPERURICAEMIA
     Route: 065
     Dates: start: 19990610
  4. DECRUMON [Concomitant]
     Route: 065
     Dates: start: 20080720
  5. ONSET [Concomitant]
     Indication: HYPERURICAEMIA
     Route: 065
     Dates: start: 20110112
  6. VIDAZA [Suspect]
     Route: 065
     Dates: start: 20110112

REACTIONS (4)
  - PYREXIA [None]
  - CARDIO-RESPIRATORY ARREST [None]
  - SEPTIC SHOCK [None]
  - DEPRESSED LEVEL OF CONSCIOUSNESS [None]
